FAERS Safety Report 17888207 (Version 1)
Quarter: 2020Q2

REPORT INFORMATION
  Report Type: Spontaneous
  Country: ES (occurrence: ES)
  Receive Date: 20200612
  Receipt Date: 20200612
  Transmission Date: 20200714
  Serious: Yes (Other)
  Sender: FDA-Public Use
  Company Number: ES-INGENUS PHARMACEUTICALS, LLC-2020INF000097

PATIENT
  Age: 18 Year
  Sex: Male
  Weight: 79.5 kg

DRUGS (4)
  1. CABERGOLINE. [Suspect]
     Active Substance: CABERGOLINE
     Dosage: 0.25 MILLIGRAM, 1 TIMES A WEEK
     Route: 065
  2. CABERGOLINE. [Suspect]
     Active Substance: CABERGOLINE
     Dosage: 0.125 MILLIGRAM, 1 TIMES A WEEK
     Route: 065
  3. INSULIN [Concomitant]
     Active Substance: INSULIN NOS
     Indication: TYPE 1 DIABETES MELLITUS
     Dosage: MULTIPLE DOSES
     Route: 058
  4. CABERGOLINE. [Suspect]
     Active Substance: CABERGOLINE
     Indication: PITUITARY TUMOUR BENIGN
     Dosage: 0.25 MILLIGRAM, TWICE A WEEK
     Route: 065

REACTIONS (1)
  - Priapism [Recovered/Resolved]
